FAERS Safety Report 5536324-4 (Version None)
Quarter: 2007Q4

REPORT INFORMATION
  Report Type: 
  Country: None (occurrence: None)
  Receive Date: 20071206
  Receipt Date: 20071127
  Transmission Date: 20080405
  Serious: No
  Sender: FDA-Public Use
  Company Number: JP-PFIZER INC-2007093059

PATIENT
  Sex: Female

DRUGS (4)
  1. XALATAN [Suspect]
     Indication: GLAUCOMA
     Route: 031
  2. TRUSOPT [Concomitant]
     Route: 047
  3. CYANOCOBALAMIN [Concomitant]
     Route: 048
  4. MIKELAN [Concomitant]
     Route: 047
     Dates: end: 20071005

REACTIONS (1)
  - HEART RATE INCREASED [None]
